FAERS Safety Report 9618617 (Version 2)
Quarter: 2013Q4

REPORT INFORMATION
  Report Type: Spontaneous
  Country: US (occurrence: US)
  Receive Date: 20131014
  Receipt Date: 20131024
  Transmission Date: 20140711
  Serious: No
  Sender: FDA-Public Use
  Company Number: US-PFIZER INC-2013293923

PATIENT
  Age: 79 Year
  Sex: Female
  Weight: 72.11 kg

DRUGS (3)
  1. LYRICA [Suspect]
     Indication: BACK PAIN
     Dosage: 50 MG (SINGLE DOSE), UNK
     Route: 048
     Dates: start: 20131011, end: 20131011
  2. LYRICA [Suspect]
     Indication: PAIN IN EXTREMITY
  3. TRAMADOL [Concomitant]
     Indication: PAIN
     Dosage: UNK

REACTIONS (6)
  - Muscle spasms [Unknown]
  - Insomnia [Unknown]
  - Sedation [Unknown]
  - Pain [Unknown]
  - Malaise [Unknown]
  - Sluggishness [Unknown]
